FAERS Safety Report 13412303 (Version 2)
Quarter: 2017Q4

REPORT INFORMATION
  Report Type: Spontaneous
  Country: US (occurrence: US)
  Receive Date: 20170406
  Receipt Date: 20171123
  Transmission Date: 20180320
  Serious: No
  Sender: FDA-Public Use
  Company Number: US-JNJFOC-20170308369

PATIENT
  Age: 12 Year
  Sex: Male

DRUGS (3)
  1. RISPERDAL [Suspect]
     Active Substance: RISPERIDONE
     Indication: AGGRESSION
     Dosage: IN VARYING DOSE OF 0.5, 01, 1.25, 1.5, 2 AND 2.5 MG
     Route: 048
     Dates: start: 20030630, end: 20030820
  2. RISPERDAL [Suspect]
     Active Substance: RISPERIDONE
     Indication: NEGATIVISM
     Dosage: IN VARYING DOSE OF 0.5, 01, 1.25, 1.5, 2 AND 2.5 MG
     Route: 048
     Dates: start: 20030630, end: 20030820
  3. RISPERDAL [Suspect]
     Active Substance: RISPERIDONE
     Indication: ATTENTION DEFICIT/HYPERACTIVITY DISORDER
     Dosage: IN VARYING DOSE OF 0.5, 01, 1.25, 1.5, 2 AND 2.5 MG
     Route: 048
     Dates: start: 20030630, end: 20030820

REACTIONS (3)
  - Gynaecomastia [Unknown]
  - Somnolence [Unknown]
  - Emotional disorder [Unknown]

NARRATIVE: CASE EVENT DATE: 200307
